FAERS Safety Report 18732173 (Version 2)
Quarter: 2021Q1

REPORT INFORMATION
  Report Type: Report from Study
  Country: CN (occurrence: CN)
  Receive Date: 20210112
  Receipt Date: 20210120
  Transmission Date: 20210419
  Serious: Yes (Hospitalization, Other)
  Sender: FDA-Public Use
  Company Number: CN-SHIRE-CN201820630AA

PATIENT
  Sex: Male
  Weight: 75 kg

DRUGS (9)
  1. ADVATE [Suspect]
     Active Substance: ANTIHEMOPHILIC FACTOR, HUMAN RECOMBINANT
     Dosage: 500 IU, EVERY FEW DAYS
     Route: 042
     Dates: start: 20180523, end: 20180527
  2. ADVATE [Suspect]
     Active Substance: ANTIHEMOPHILIC FACTOR, HUMAN RECOMBINANT
     Dosage: 500 IU, EVERY FEW DAYS
     Route: 042
     Dates: start: 20180523, end: 20180527
  3. ADVATE [Suspect]
     Active Substance: ANTIHEMOPHILIC FACTOR, HUMAN RECOMBINANT
     Dosage: 1000 INTERNATIONAL UNIT, QOD
     Route: 050
     Dates: start: 20200807, end: 20210105
  4. ADVATE [Suspect]
     Active Substance: ANTIHEMOPHILIC FACTOR, HUMAN RECOMBINANT
     Dosage: 1000 INTERNATIONAL UNIT, QOD
     Route: 050
     Dates: start: 20200807, end: 20210105
  5. ADVATE [Suspect]
     Active Substance: ANTIHEMOPHILIC FACTOR, HUMAN RECOMBINANT
     Dosage: 1000 INTERNATIONAL UNIT, QOD
     Route: 050
     Dates: start: 20200807, end: 20210105
  6. ADVATE [Suspect]
     Active Substance: ANTIHEMOPHILIC FACTOR, HUMAN RECOMBINANT
     Indication: FACTOR VIII DEFICIENCY
     Dosage: 500 IU, EVERY FEW DAYS
     Route: 042
     Dates: end: 20180522
  7. ADVATE [Suspect]
     Active Substance: ANTIHEMOPHILIC FACTOR, HUMAN RECOMBINANT
     Indication: FACTOR VIII DEFICIENCY
     Dosage: 500 IU, EVERY FEW DAYS
     Route: 042
     Dates: end: 20180522
  8. ADVATE [Suspect]
     Active Substance: ANTIHEMOPHILIC FACTOR, HUMAN RECOMBINANT
     Indication: FACTOR VIII DEFICIENCY
     Dosage: 500 IU, EVERY FEW DAYS
     Route: 042
     Dates: end: 20180522
  9. ADVATE [Suspect]
     Active Substance: ANTIHEMOPHILIC FACTOR, HUMAN RECOMBINANT
     Dosage: 500 IU, EVERY FEW DAYS
     Route: 042
     Dates: start: 20180523, end: 20180527

REACTIONS (4)
  - Humerus fracture [Recovered/Resolved with Sequelae]
  - Pain in extremity [Recovered/Resolved with Sequelae]
  - Haemorrhage [Unknown]
  - Road traffic accident [Recovered/Resolved with Sequelae]
